FAERS Safety Report 8354978-4 (Version None)
Quarter: 2012Q2

REPORT INFORMATION
  Report Type: 
  Country: None (occurrence: None)
  Receive Date: 20120511
  Receipt Date: 20120501
  Transmission Date: 20120825
  Serious: Yes (Other)
  Sender: FDA-Public Use
  Company Number: GB-JNJFOC-20120504210

PATIENT
  Age: 2 Year
  Sex: Female

DRUGS (1)
  1. TOPAMAX [Suspect]
     Indication: ACCIDENTAL EXPOSURE
     Route: 048

REACTIONS (5)
  - ACCIDENTAL EXPOSURE [None]
  - HALLUCINATION [None]
  - SPEECH DISORDER [None]
  - DYSKINESIA [None]
  - MANIA [None]
